FAERS Safety Report 15671502 (Version 2)
Quarter: 2019Q4

REPORT INFORMATION
  Report Type: Report from Study
  Country: US (occurrence: US)
  Receive Date: 20181129
  Receipt Date: 20191226
  Transmission Date: 20200122
  Serious: No
  Sender: FDA-Public Use
  Company Number: US-TESARO-US-2018TSO04183

PATIENT
  Sex: Female

DRUGS (4)
  1. NIRAPARIB CAPSULE [Suspect]
     Active Substance: NIRAPARIB
     Dosage: 200 MG PM WITHOUT FOOD
     Dates: start: 20190709, end: 20190930
  2. NIRAPARIB CAPSULE [Suspect]
     Active Substance: NIRAPARIB
     Indication: MALIGNANT PERITONEAL NEOPLASM
     Dosage: 200 MG, QD (EVERY BEDTIME)
     Route: 048
     Dates: start: 20180115, end: 20190822
  3. NIRAPARIB CAPSULE [Suspect]
     Active Substance: NIRAPARIB
     Dosage: 200 MG, QD (EVERY BEDTIME)
     Route: 048
     Dates: start: 20180906, end: 20181020
  4. NIRAPARIB CAPSULE [Suspect]
     Active Substance: NIRAPARIB
     Dosage: 100MG PM WITH FOOD
     Dates: start: 20191015

REACTIONS (1)
  - Carbohydrate antigen 125 increased [Recovering/Resolving]
